FAERS Safety Report 8797175 (Version 1)
Quarter: 2012Q4

REPORT INFORMATION
  Report Type: 
  Country: US (occurrence: US)
  Receive Date: 20120919
  Receipt Date: 20120919
  Transmission Date: 20130627
  Serious: No
  Sender: FDA-Public Use
  Company Number: US-ASTRAZENECA-2012SE71427

PATIENT
  Age: 53 Year
  Sex: Female

DRUGS (3)
  1. SEROQUEL XR [Suspect]
     Indication: BIPOLAR DISORDER
     Route: 048
  2. HUMIRA SHOTS [Concomitant]
  3. LEXAPRO [Concomitant]

REACTIONS (8)
  - Aphagia [Unknown]
  - Insomnia [Unknown]
  - Diarrhoea [Unknown]
  - Abdominal discomfort [Unknown]
  - Withdrawal syndrome [Unknown]
  - Rheumatoid arthritis [Unknown]
  - Vomiting [Unknown]
  - Drug dose omission [Unknown]
